FAERS Safety Report 8585836-8 (Version None)
Quarter: 2012Q3

REPORT INFORMATION
  Report Type: 
  Country: None (occurrence: None)
  Receive Date: 20120810
  Receipt Date: 20120801
  Transmission Date: 20120928
  Serious: Yes (Hospitalization)
  Sender: FDA-Public Use
  Company Number: US-ELI_LILLY_AND_COMPANY-US201205003703

PATIENT
  Sex: Female

DRUGS (13)
  1. ZOLPIDEM [Concomitant]
     Dosage: UNK, PRN
  2. FORTEO [Suspect]
     Indication: OSTEOPOROSIS
     Dosage: 20 UG, QD
     Dates: start: 20120428
  3. METFORMIN HCL [Concomitant]
     Dosage: UNK
  4. GABAPENTIN [Concomitant]
     Dosage: UNK
  5. FUROSEMIDE [Concomitant]
     Dosage: UNK
  6. LIPITOR [Concomitant]
     Dosage: UNK
  7. CITALOPRAM HYDROBROMIDE [Concomitant]
     Dosage: 20 MG, UNKNOWN
  8. LEVOTHYROXINE SODIUM [Concomitant]
     Dosage: 0.125 MG, UNKNOWN
  9. LISINOPRIL [Concomitant]
     Dosage: UNK
  10. VITAMIN D2 [Concomitant]
     Dosage: 1.25 DF, MONTHLY (1/M)
  11. METORPOLOLTARTRAAT A [Concomitant]
     Dosage: 25 MG, UNKNOWN
  12. POTASSIUM CHLORIDE [Concomitant]
     Dosage: UNK
  13. PERCOCET [Concomitant]
     Dosage: UNK

REACTIONS (6)
  - JOINT DISLOCATION [None]
  - SCRATCH [None]
  - FALL [None]
  - CONTUSION [None]
  - MOBILITY DECREASED [None]
  - PAIN [None]
